FAERS Safety Report 8645155 (Version 2)
Quarter: 2013Q1

REPORT INFORMATION
  Report Type: Spontaneous
  Country: MX (occurrence: MX)
  Receive Date: 20120702
  Receipt Date: 20130125
  Transmission Date: 20140127
  Serious: Yes (Other)
  Sender: FDA-Public Use
  Company Number: PHHY2009MX46110

PATIENT
  Age: 59 Year
  Sex: Female

DRUGS (1)
  1. ACLASTA [Suspect]
     Indication: OSTEOPOROSIS
     Dosage: 5MG/100ML PER YEAR
     Route: 042
     Dates: start: 20090923

REACTIONS (4)
  - Intraocular pressure increased [Recovered/Resolved]
  - Eye discharge [Unknown]
  - Eye pain [Recovered/Resolved]
  - Migraine [Recovered/Resolved]
